FAERS Safety Report 9729899 (Version 2)
Quarter: 2013Q4

REPORT INFORMATION
  Report Type: Report from Study
  Country: DE (occurrence: DE)
  Receive Date: 20131204
  Receipt Date: 20131204
  Transmission Date: 20140711
  Serious: Yes (Death, Hospitalization, Other)
  Sender: FDA-Public Use
  Company Number: DE-CELGENEUS-062-21660-12114008

PATIENT
  Age: 51 Year
  Sex: Female

DRUGS (5)
  1. ABRAXANE [Suspect]
     Indication: BREAST CANCER METASTATIC
     Dosage: 150 MILLIGRAM/SQ. METER
     Route: 065
     Dates: start: 20120510
  2. ABRAXANE [Suspect]
     Route: 065
     Dates: start: 20120606
  3. ABRAXANE [Suspect]
     Route: 065
     Dates: start: 20120614, end: 20120704
  4. ABRAXANE [Suspect]
     Route: 065
     Dates: start: 20120719
  5. ABRAXANE [Suspect]
     Route: 065
     Dates: end: 20121004

REACTIONS (6)
  - Death [Fatal]
  - Metastases to central nervous system [Unknown]
  - Nausea [Recovered/Resolved]
  - Vomiting [Recovered/Resolved]
  - Neutropenia [Recovered/Resolved]
  - Neutropenia [Recovered/Resolved]
